FAERS Safety Report 5417963-8 (Version None)
Quarter: 2007Q3

REPORT INFORMATION
  Report Type: 
  Country: None (occurrence: None)
  Receive Date: 20070817
  Receipt Date: 20070814
  Transmission Date: 20080115
  Serious: Yes (Life-Threatening, Hospitalization)
  Sender: FDA-Public Use
  Company Number: US-ASTRAZENECA-2007UW08814

PATIENT
  Age: 90 Year
  Sex: Female
  Weight: 51.7 kg

DRUGS (2)
  1. SEROQUEL [Suspect]
     Indication: DEMENTIA
     Route: 048
     Dates: start: 20041201
  2. LASIX [Concomitant]

REACTIONS (8)
  - ACUTE RESPIRATORY FAILURE [None]
  - BRAIN DAMAGE [None]
  - CARDIAC DISORDER [None]
  - CHOKING [None]
  - DRUG DEPENDENCE [None]
  - PNEUMONIA [None]
  - POLLAKIURIA [None]
  - REPETITIVE SPEECH [None]
